FAERS Safety Report 24327145 (Version 1)
Quarter: 2024Q3

REPORT INFORMATION
  Report Type: Spontaneous
  Country: US (occurrence: US)
  Receive Date: 20240917
  Receipt Date: 20240917
  Transmission Date: 20241016
  Serious: No
  Sender: MERCK
  Company Number: US-009507513-2408USA006330

PATIENT
  Sex: Male

DRUGS (2)
  1. JANUVIA [Suspect]
     Active Substance: SITAGLIPTIN PHOSPHATE
     Dosage: 100 MILLIGRAM, QD
     Route: 048
  2. GLIPIZIDE [Suspect]
     Active Substance: GLIPIZIDE

REACTIONS (3)
  - Nausea [Unknown]
  - Blood glucose increased [Unknown]
  - Product dose omission issue [Unknown]
